FAERS Safety Report 6278707-3 (Version None)
Quarter: 2009Q3

REPORT INFORMATION
  Report Type: 
  Country: None (occurrence: None)
  Receive Date: 20090721
  Receipt Date: 20090716
  Transmission Date: 20100115
  Serious: Yes (Hospitalization)
  Sender: FDA-Public Use
  Company Number: 1000006200

PATIENT
  Age: 70 Year
  Sex: Female

DRUGS (3)
  1. MONUROL [Suspect]
     Indication: URINARY TRACT INFECTION
     Dosage: (3 GM, ONCE), ORAL
     Route: 048
     Dates: start: 20090504, end: 20090504
  2. DIOVAN [Concomitant]
  3. TOPROL-XL [Concomitant]

REACTIONS (4)
  - ARTERIAL DISORDER [None]
  - CHEST PAIN [None]
  - HYPOAESTHESIA [None]
  - PAIN IN EXTREMITY [None]
